FAERS Safety Report 19705999 (Version 5)
Quarter: 2021Q4

REPORT INFORMATION
  Report Type: Spontaneous
  Country: US (occurrence: US)
  Receive Date: 20210817
  Receipt Date: 20211008
  Transmission Date: 20220304
  Serious: No
  Sender: FDA-Public Use
  Company Number: NVSC2021US184823

PATIENT
  Sex: Female

DRUGS (3)
  1. VIVELLE-DOT [Suspect]
     Active Substance: ESTRADIOL
     Indication: Product used for unknown indication
     Dosage: UNK
     Route: 065
     Dates: start: 1980
  2. VIVELLE-DOT [Suspect]
     Active Substance: ESTRADIOL
     Dosage: 0.1 MG
     Route: 065
  3. ESTRADIOL [Suspect]
     Active Substance: ESTRADIOL
     Indication: Product used for unknown indication
     Route: 065

REACTIONS (18)
  - Hyperhidrosis [Unknown]
  - Feeling hot [Unknown]
  - Pelvic discomfort [Unknown]
  - Urethritis noninfective [Unknown]
  - Infection [Unknown]
  - Cystitis [Unknown]
  - Feeling abnormal [Unknown]
  - Bladder irritation [Unknown]
  - Anxiety [Unknown]
  - Depression [Unknown]
  - Oestrogen deficiency [Unknown]
  - Breast tenderness [Unknown]
  - Mood altered [Unknown]
  - Therapeutic response changed [Unknown]
  - Bladder discomfort [Unknown]
  - Hot flush [Unknown]
  - Incorrect dose administered by product [Unknown]
  - Drug ineffective [Unknown]
